FAERS Safety Report 6176859-7 (Version None)
Quarter: 2009Q2

REPORT INFORMATION
  Report Type: 
  Country: None (occurrence: None)
  Receive Date: 20090501
  Receipt Date: 20081118
  Transmission Date: 20091009
  Serious: Yes (Hospitalization, Other)
  Sender: FDA-Public Use
  Company Number: FR-ALEXION-A200800366

PATIENT

DRUGS (8)
  1. SOLIRIS [Suspect]
     Indication: PAROXYSMAL NOCTURNAL HAEMOGLOBINURIA
     Dosage: 600 MG, QW
     Route: 042
     Dates: start: 20070701, end: 20070810
  2. SOLIRIS [Suspect]
     Dosage: 900 MG, Q2W
     Route: 042
     Dates: start: 20070817
  3. ORACILLINE /00001801/ [Concomitant]
     Route: 048
  4. TRIATEC /00885601/ [Concomitant]
     Dosage: 2.5 MG, UNK
     Route: 048
  5. KARDEGIC /00002703/ [Concomitant]
     Dosage: 75 MG, UNK
     Route: 058
  6. EPREX [Concomitant]
     Route: 058
  7. ZYLORIC /00003301/ [Concomitant]
     Dosage: 100 MG, UNK
     Route: 048
  8. ARANESP [Concomitant]
     Dosage: 100 UG, UNK
     Route: 058

REACTIONS (2)
  - ANAEMIA [None]
  - HAEMOLYSIS [None]
